FAERS Safety Report 15265630 (Version 1)
Quarter: 2018Q3

REPORT INFORMATION
  Report Type: Report from Study
  Country: IL (occurrence: IL)
  Receive Date: 20180810
  Receipt Date: 20180810
  Transmission Date: 20181010
  Serious: Yes (Hospitalization, Other)
  Sender: FDA-Public Use
  Company Number: IL-SHIRE-IL201830623

PATIENT

DRUGS (1)
  1. VELAGLUCERASE ALFA [Suspect]
     Active Substance: VELAGLUCERASE ALFA
     Indication: GAUCHER^S DISEASE
     Dosage: 45 IU/KG, 1X/2WKS
     Route: 065
     Dates: start: 20100128

REACTIONS (1)
  - Cervicitis [Not Recovered/Not Resolved]

NARRATIVE: CASE EVENT DATE: 20180803
